FAERS Safety Report 7055320-1 (Version None)
Quarter: 2010Q4

REPORT INFORMATION
  Report Type: 
  Country: None (occurrence: None)
  Receive Date: 20101021
  Receipt Date: 20101013
  Transmission Date: 20110411
  Serious: Yes (Other)
  Sender: FDA-Public Use
  Company Number: US-ELI_LILLY_AND_COMPANY-US201008005638

PATIENT
  Sex: Male
  Weight: 83.9 kg

DRUGS (9)
  1. BYETTA [Suspect]
     Indication: TYPE 2 DIABETES MELLITUS
     Dosage: 10 UG, 2/D
     Route: 058
  2. GLIMEPIRIDE [Concomitant]
     Indication: TYPE 2 DIABETES MELLITUS
     Dosage: 4 MG, 2/D
  3. ACTOS [Concomitant]
     Indication: TYPE 2 DIABETES MELLITUS
     Dosage: 30 MG, DAILY (1/D)
  4. LESCOL XL [Concomitant]
     Dosage: 80 MG, EACH EVENING
  5. AMLODIPINE [Concomitant]
     Dosage: 10 MG, DAILY (1/D)
     Route: 048
  6. SYNTHROID [Concomitant]
     Dosage: 50 UG, DAILY (1/D)
     Route: 048
  7. LISINOPRIL [Concomitant]
  8. INSULIN [Concomitant]
  9. LEVEMIR [Concomitant]
     Dosage: 10 U, EACH EVENING

REACTIONS (12)
  - BLOOD GLUCOSE DECREASED [None]
  - BLOOD GLUCOSE INCREASED [None]
  - BRONCHITIS [None]
  - DEHYDRATION [None]
  - DIZZINESS [None]
  - OFF LABEL USE [None]
  - POOR QUALITY DRUG ADMINISTERED [None]
  - RENAL DISORDER [None]
  - RENAL FAILURE CHRONIC [None]
  - THYROID DISORDER [None]
  - VITAMIN D DEFICIENCY [None]
  - WEIGHT DECREASED [None]
